FAERS Safety Report 7583091-9 (Version None)
Quarter: 2011Q2

REPORT INFORMATION
  Report Type: 
  Country: None (occurrence: None)
  Receive Date: 20110630
  Receipt Date: 20110624
  Transmission Date: 20111010
  Serious: Yes (Other)
  Sender: FDA-Public Use
  Company Number: JP-EISAI INC-E2090-01663-SPO-JP

PATIENT
  Sex: Female

DRUGS (1)
  1. ZONISAMIDE [Suspect]
     Dosage: 100 MG
     Route: 048
     Dates: start: 20100618, end: 20100624

REACTIONS (1)
  - VISUAL ACUITY REDUCED [None]
